FAERS Safety Report 9479416 (Version 2)
Quarter: 2013Q3

REPORT INFORMATION
  Report Type: Spontaneous
  Country: JP (occurrence: JP)
  Receive Date: 20130827
  Receipt Date: 20130827
  Transmission Date: 20140515
  Serious: Yes (Hospitalization)
  Sender: FDA-Public Use
  Company Number: JP-B.I. PHARMACEUTICALS,INC./RIDGEFIELD-2013-BI-26047NB

PATIENT
  Age: 79 Year
  Sex: Male
  Weight: 61.6 kg

DRUGS (2)
  1. PRAZAXA [Suspect]
     Indication: ANGINA PECTORIS
     Dosage: 220 MG
     Route: 048
     Dates: start: 20130206, end: 20130719
  2. WARFARIN [Concomitant]
     Dosage: 4 MG
     Route: 048
     Dates: end: 20130205

REACTIONS (3)
  - Oesophageal ulcer [Not Recovered/Not Resolved]
  - Gastrooesophageal reflux disease [Recovered/Resolved]
  - Dyspepsia [Unknown]
